FAERS Safety Report 5885418-2 (Version None)
Quarter: 2008Q3

REPORT INFORMATION
  Report Type: 
  Country: None (occurrence: None)
  Receive Date: 20080818
  Receipt Date: 20070807
  Transmission Date: 20090109
  Serious: Yes (Hospitalization)
  Sender: FDA-Public Use
  Company Number: 20074005

PATIENT
  Sex: Male

DRUGS (1)
  1. LIORESAL [Suspect]
     Indication: MUSCLE SPASTICITY
     Dosage: 677.5 MCG, DAILY, INTRATHECAL
     Route: 037

REACTIONS (6)
  - ANXIETY [None]
  - DRUG INEFFECTIVE [None]
  - HYPERTENSION [None]
  - HYPERTONIA [None]
  - PRURITUS [None]
  - WITHDRAWAL SYNDROME [None]
